FAERS Safety Report 4484267-X (Version None)
Quarter: 2004Q4

REPORT INFORMATION
  Report Type: 
  Country: None (occurrence: None)
  Receive Date: 20041025
  Receipt Date: 20041014
  Transmission Date: 20050328
  Serious: Yes (Other)
  Sender: FDA-Public Use
  Company Number: FR-GLAXOSMITHKLINE-B0348942A

PATIENT
  Age: 44 Year
  Sex: Male

DRUGS (2)
  1. NARAMIG [Suspect]
     Indication: MIGRAINE
     Dosage: 2.5MG SEE DOSAGE TEXT
     Route: 048
     Dates: start: 20040201
  2. ANAFRANIL [Suspect]
     Indication: MIGRAINE
     Route: 048
     Dates: start: 20040201, end: 20040601

REACTIONS (3)
  - DRUG ABUSER [None]
  - MIGRAINE [None]
  - TRANSAMINASES INCREASED [None]
